FAERS Safety Report 11780846 (Version 2)
Quarter: 2016Q1

REPORT INFORMATION
  Report Type: Spontaneous
  Country: IT (occurrence: IT)
  Receive Date: 20151126
  Receipt Date: 20160112
  Transmission Date: 20160525
  Serious: Yes (Disabling)
  Sender: FDA-Public Use
  Company Number: IT-ROCHE-1667446

PATIENT
  Age: 57 Year
  Sex: Male

DRUGS (2)
  1. CELLCEPT [Suspect]
     Active Substance: MYCOPHENOLATE MOFETIL\MYCOPHENOLATE MOFETIL HYDROCHLORIDE
     Indication: RENAL TRANSPLANT
     Route: 048
     Dates: start: 20130801, end: 20150610
  2. DELTACORTENE [Concomitant]
     Active Substance: PREDNISONE
     Route: 065

REACTIONS (1)
  - Movement disorder [Recovering/Resolving]

NARRATIVE: CASE EVENT DATE: 20150610
